FAERS Safety Report 20217383 (Version 2)
Quarter: 2022Q1

REPORT INFORMATION
  Report Type: Spontaneous
  Country: IT (occurrence: IT)
  Receive Date: 20211222
  Receipt Date: 20220104
  Transmission Date: 20220423
  Serious: Yes (Hospitalization, Other)
  Sender: FDA-Public Use
  Company Number: IT-BoehringerIngelheim-2021-BI-145050

PATIENT
  Age: 93 Year
  Sex: Male

DRUGS (1)
  1. PRADAXA [Suspect]
     Active Substance: DABIGATRAN ETEXILATE MESYLATE
     Indication: Atrial fibrillation
     Dates: end: 20211221

REACTIONS (6)
  - Fall [Unknown]
  - Femur fracture [Unknown]
  - Spinal column injury [Unknown]
  - Rib fracture [Unknown]
  - Traumatic haemothorax [Unknown]
  - Haematoma [Unknown]
